FAERS Safety Report 13639745 (Version 1)
Quarter: 2017Q2

REPORT INFORMATION
  Report Type: Spontaneous
  Country: US (occurrence: US)
  Receive Date: 20170609
  Receipt Date: 20170609
  Transmission Date: 20170830
  Serious: No
  Sender: FDA-Public Use
  Company Number: US-ROCHE-1555462

PATIENT

DRUGS (3)
  1. KLONOPIN [Suspect]
     Active Substance: CLONAZEPAM
     Indication: PRODUCT USED FOR UNKNOWN INDICATION
     Dosage: PATIENT TAKEN 2 MG DOSE
     Route: 065
  2. CODEINE [Concomitant]
     Active Substance: CODEINE
  3. TYLENOL [Concomitant]
     Active Substance: ACETAMINOPHEN

REACTIONS (3)
  - Hallucination [Unknown]
  - Anxiety [Unknown]
  - Insomnia [Unknown]
